FAERS Safety Report 23488932 (Version 1)
Quarter: 2024Q1

REPORT INFORMATION
  Report Type: Spontaneous
  Country: NL (occurrence: NL)
  Receive Date: 20240206
  Receipt Date: 20240206
  Transmission Date: 20240410
  Serious: Yes (Life-Threatening)
  Sender: FDA-Public Use
  Company Number: None

PATIENT
  Age: 47 Year
  Sex: Female
  Weight: 78 kg

DRUGS (15)
  1. LYRICA [Suspect]
     Active Substance: PREGABALIN
     Indication: Neuralgia
     Dosage: 75 MILLIGRAM, BID (1 PIECE TWICE A DAY)
     Route: 065
     Dates: start: 20231220
  2. ALBUTEROL [Concomitant]
     Active Substance: ALBUTEROL
     Dosage: AEROSOL, 100 ?G/DOSE (MICROGRAMS PER DOSE), STRENGTH: 100 MICROGRAM/DOSE
     Route: 065
  3. GRAZAX [Concomitant]
     Active Substance: PHLEUM PRATENSE POLLEN
     Dosage: MELTING TABLET (STRENGTH: 75000 SQ-T)
     Route: 065
  4. NOVORAPID [Concomitant]
     Active Substance: INSULIN ASPART
     Dosage: VIA INSULIN PUMP (STRENGTH: 100 U/ML)
     Route: 065
  5. CLEMASTINE [Concomitant]
     Active Substance: CLEMASTINE
     Dosage: 1 MILLIGRAM
     Route: 065
  6. SALMETEROL [Concomitant]
     Active Substance: SALMETEROL
     Dosage: AEROSOL, 25 ?G/DOSE (MICROGRAMS PER DOSE) (STRENGTH: 25 MICROGRAM PER DOSE)
     Route: 065
  7. ETHINYL ESTRADIOL [Concomitant]
     Active Substance: ETHINYL ESTRADIOL
     Dosage: TABLET, 0.05 MG (MILLIGRAM)
     Route: 065
  8. POLYETHYLENE GLYCOLS [Concomitant]
     Active Substance: POLYETHYLENE GLYCOLS
     Dosage: POWDER FOR DRINK
     Route: 065
  9. OMEPRAZOLE [Concomitant]
     Active Substance: OMEPRAZOLE
     Dosage: GASTRO-RESISTANT CAPSULE, 20 MG (MILLIGRAM)
     Route: 065
  10. OXYCODONE [Concomitant]
     Active Substance: OXYCODONE\OXYCODONE HYDROCHLORIDE
     Dosage: CAPSULE, 5 MG (MILLIGRAM)
     Route: 065
  11. ACARIZAX [Concomitant]
     Active Substance: DERMATOPHAGOIDES FARINAE\DERMATOPHAGOIDES PTERONYSSINUS
     Dosage: MELTING TABLET (STRENGTH: 12 SQ-HDM)
     Route: 065
  12. TRIAMCINOLONE ACETONIDE [Concomitant]
     Active Substance: TRIAMCINOLONE ACETONIDE
     Dosage: 1 MILLIGRAM PER GRAM
     Route: 065
  13. CICLESONIDE [Concomitant]
     Active Substance: CICLESONIDE
     Dosage: AEROSOL, 160 ?G/DOSE (MICROGRAM PER DOSE) (STRENGTH: 160 MICROGRAM PER DOSE)
     Route: 065
  14. OMEPRAZOL CF [Concomitant]
     Dosage: GASTRO-RESISTANT CAPSULE, 20 MG (MILLIGRAM)
     Route: 065
  15. EUTHYROX [Concomitant]
     Active Substance: LEVOTHYROXINE SODIUM
     Dosage: DON^T KNOW, DON^T HAVE ENOUGH ENERGY TO LOOK EVERYTHING UP
     Route: 065

REACTIONS (7)
  - Suicidal ideation [Recovering/Resolving]
  - Slow response to stimuli [Recovering/Resolving]
  - Speech disorder developmental [Recovering/Resolving]
  - Fatigue [Recovering/Resolving]
  - Memory impairment [Recovering/Resolving]
  - Feeling abnormal [Recovering/Resolving]
  - Balance disorder [Recovering/Resolving]
